FAERS Safety Report 8290688 (Version 3)
Quarter: 2013Q1

REPORT INFORMATION
  Report Type: Spontaneous
  Country: US (occurrence: US)
  Receive Date: 20111214
  Receipt Date: 20130208
  Transmission Date: 20140127
  Serious: Yes (Other)
  Sender: FDA-Public Use
  Company Number: US-JNJFOC-20111204646

PATIENT
  Sex: Female

DRUGS (4)
  1. INVEGA SUSTENNA [Suspect]
     Indication: PRODUCT USED FOR UNKNOWN INDICATION
     Route: 030
     Dates: start: 20111018
  2. INVEGA SUSTENNA [Suspect]
     Indication: PRODUCT USED FOR UNKNOWN INDICATION
     Route: 030
     Dates: start: 20111025
  3. INVEGA SUSTENNA [Suspect]
     Indication: PRODUCT USED FOR UNKNOWN INDICATION
     Route: 030
     Dates: start: 20111129
  4. ABILIFY [Suspect]
     Indication: PRODUCT USED FOR UNKNOWN INDICATION
     Route: 065

REACTIONS (11)
  - Diabetes mellitus [Not Recovered/Not Resolved]
  - Mouth haemorrhage [Unknown]
  - Drug prescribing error [Unknown]
  - Weight increased [Not Recovered/Not Resolved]
  - Hypoaesthesia [Unknown]
  - Hypokinesia [Unknown]
  - Rash [Unknown]
  - Drug administered at inappropriate site [Unknown]
  - Fatigue [Unknown]
  - Diarrhoea [Unknown]
  - Heart rate increased [Unknown]
